FAERS Safety Report 13338081 (Version 2)
Quarter: 2017Q2

REPORT INFORMATION
  Report Type: Spontaneous
  Country: US (occurrence: US)
  Receive Date: 20170315
  Receipt Date: 20170419
  Transmission Date: 20170830
  Serious: Yes (Hospitalization, Other)
  Sender: FDA-Public Use
  Company Number: US-GLAXOSMITHKLINE-US2017035485

PATIENT
  Age: 74 Year
  Sex: Male

DRUGS (1)
  1. VENTOLIN HFA [Suspect]
     Active Substance: ALBUTEROL SULFATE
     Indication: DYSPNOEA
     Dosage: 1 PUFF(S), PRN
     Route: 055
     Dates: start: 201603

REACTIONS (8)
  - Lung neoplasm malignant [Recovered/Resolved]
  - Product quality issue [Unknown]
  - Choking [Recovered/Resolved]
  - Lung neoplasm surgery [Recovered/Resolved]
  - Pneumothorax [Recovered/Resolved]
  - Lung operation [Recovered/Resolved]
  - Biopsy lung [Recovered/Resolved]
  - Cough [Recovered/Resolved]

NARRATIVE: CASE EVENT DATE: 2016
